FAERS Safety Report 6190157-7 (Version None)
Quarter: 2009Q2

REPORT INFORMATION
  Report Type: 
  Country: None (occurrence: None)
  Receive Date: 20090513
  Receipt Date: 20090513
  Transmission Date: 20091009
  Serious: Yes (Other)
  Sender: FDA-Public Use
  Company Number: None

PATIENT

DRUGS (1)
  1. CREST PROHEALTH TOOTHPASTE WHITE  PROCTOR + GAMBLE [Suspect]
     Indication: DENTAL CLEANING
     Dosage: 2X DAILY
     Dates: start: 20090501, end: 20090512

REACTIONS (2)
  - LIP EXFOLIATION [None]
  - ORAL MUCOSAL EXFOLIATION [None]
